FAERS Safety Report 5531414-4 (Version None)
Quarter: 2007Q4

REPORT INFORMATION
  Report Type: 
  Country: None (occurrence: None)
  Receive Date: 20071203
  Receipt Date: 20071122
  Transmission Date: 20080405
  Serious: Yes (Other)
  Sender: FDA-Public Use
  Company Number: FR-JNJFOC-20071002194

PATIENT
  Age: 77 Year
  Sex: Male

DRUGS (4)
  1. OFLOCET [Suspect]
     Indication: PROSTATITIS
     Route: 048
  2. MONOTILDIEM [Concomitant]
     Indication: PROPHYLAXIS
     Route: 048
  3. KARDEGIC [Concomitant]
     Indication: PROPHYLAXIS
     Route: 048
  4. SIMVASTATIN EZETIMIBE [Concomitant]
     Indication: HYPERCHOLESTEROLAEMIA
     Route: 048

REACTIONS (4)
  - ACUTE MYELOID LEUKAEMIA [None]
  - NEOPLASM MALIGNANT [None]
  - PANCYTOPENIA [None]
  - PULMONARY EMBOLISM [None]
